FAERS Safety Report 8395617-6 (Version None)
Quarter: 2012Q2

REPORT INFORMATION
  Report Type: 
  Country: None (occurrence: None)
  Receive Date: 20120530
  Receipt Date: 20111128
  Transmission Date: 20120825
  Serious: No
  Sender: FDA-Public Use
  Company Number: US-GLAXOSMITHKLINE-A0955285A

PATIENT
  Age: 85 Year
  Sex: Female

DRUGS (10)
  1. UNKNOWN MEDICATION [Concomitant]
     Indication: ANXIETY
  2. ALPHAGAN [Concomitant]
  3. ZANTAC [Concomitant]
  4. OXYGEN [Concomitant]
  5. BRINZOLAMIDE [Concomitant]
  6. VENTOLIN [Suspect]
     Indication: EMPHYSEMA
     Dosage: 2PUFF UNKNOWN
     Route: 055
     Dates: start: 20060101, end: 20111124
  7. OXYCODONE HCL [Concomitant]
  8. SPIRIVA [Concomitant]
  9. ADVAIR DISKUS 100/50 [Concomitant]
  10. LUMIGAN [Concomitant]

REACTIONS (1)
  - ABDOMINAL PAIN UPPER [None]
